FAERS Safety Report 7488752-8 (Version None)
Quarter: 2011Q2

REPORT INFORMATION
  Report Type: 
  Country: None (occurrence: None)
  Receive Date: 20110518
  Receipt Date: 20110513
  Transmission Date: 20111010
  Serious: Yes (Other)
  Sender: FDA-Public Use
  Company Number: DE-ABBOTT-11P-062-0725884-00

PATIENT
  Age: 72 Year
  Sex: Male

DRUGS (1)
  1. HUMIRA [Suspect]
     Indication: PSORIASIS
     Dates: end: 20110318

REACTIONS (7)
  - LYMPH NODE CALCIFICATION [None]
  - PULMONARY GRANULOMA [None]
  - HIATUS HERNIA [None]
  - TUBERCULOSIS [None]
  - MYCOBACTERIUM TUBERCULOSIS COMPLEX TEST POSITIVE [None]
  - INFLAMMATION [None]
  - GOITRE [None]
